FAERS Safety Report 7800770-6 (Version None)
Quarter: 2011Q4

REPORT INFORMATION
  Report Type: 
  Country: None (occurrence: None)
  Receive Date: 20111006
  Receipt Date: 20110927
  Transmission Date: 20120403
  Serious: Yes (Hospitalization)
  Sender: FDA-Public Use
  Company Number: MX-BAXTER-2011BH028676

PATIENT
  Sex: Female

DRUGS (1)
  1. TISSEEL VH KIT [Suspect]
     Indication: HAEMOSTASIS
     Route: 065
     Dates: start: 20110801, end: 20110801

REACTIONS (2)
  - MENINGITIS ASEPTIC [None]
  - MUSCULOSKELETAL STIFFNESS [None]
